FAERS Safety Report 7533546-8 (Version None)
Quarter: 2011Q2

REPORT INFORMATION
  Report Type: 
  Country: None (occurrence: None)
  Receive Date: 20110608
  Receipt Date: 20060118
  Transmission Date: 20111010
  Serious: Yes (Other)
  Sender: FDA-Public Use
  Company Number: PHNR2006AU00482

PATIENT
  Sex: Female

DRUGS (1)
  1. CLOZAPINE [Suspect]
     Dosage: 175-350 MG DAILY
     Dates: start: 20041214, end: 20060118

REACTIONS (1)
  - DILATATION VENTRICULAR [None]
